FAERS Safety Report 5458321-X (Version None)
Quarter: 2007Q3

REPORT INFORMATION
  Report Type: 
  Country: None (occurrence: None)
  Receive Date: 20070919
  Receipt Date: 20061127
  Transmission Date: 20080115
  Serious: No
  Sender: FDA-Public Use
  Company Number: US-BAUSCH-2006BL006553

PATIENT
  Age: 5 Year
  Sex: Male

DRUGS (2)
  1. PROPARACAINE HCL [Suspect]
     Indication: REMOVAL OF FOREIGN BODY FROM EYE
     Route: 047
     Dates: start: 20061016, end: 20061016
  2. FLUORETS [Suspect]
     Indication: REMOVAL OF FOREIGN BODY FROM EYE
     Route: 047
     Dates: start: 20061016, end: 20061016

REACTIONS (3)
  - BLISTER [None]
  - ERYTHEMA [None]
  - ERYTHEMA OF EYELID [None]
